FAERS Safety Report 6589514-6 (Version None)
Quarter: 2010Q1

REPORT INFORMATION
  Report Type: 
  Country: None (occurrence: None)
  Receive Date: 20100212
  Receipt Date: 20100128
  Transmission Date: 20100710
  Serious: Yes (Other)
  Sender: FDA-Public Use
  Company Number: 006278

PATIENT
  Age: 78 Year
  Sex: Male

DRUGS (1)
  1. PREDNISOLONE [Suspect]
     Dosage: (30 MG QD, REDUCING DOSE), (15 MG QD)

REACTIONS (10)
  - ERYTHEMA [None]
  - INJURY [None]
  - LEUKOCYTOSIS [None]
  - RASH PUSTULAR [None]
  - SCAB [None]
  - SKIN EROSION [None]
  - SKIN NECROSIS [None]
  - SKIN PLAQUE [None]
  - SKIN TEST POSITIVE [None]
  - SKIN ULCER [None]
